FAERS Safety Report 24284894 (Version 1)
Quarter: 2024Q3

REPORT INFORMATION
  Report Type: Spontaneous
  Country: DE (occurrence: DE)
  Receive Date: 20240905
  Receipt Date: 20240905
  Transmission Date: 20241017
  Serious: Yes (Other)
  Sender: GILEAD
  Company Number: DE-GILEAD-2024-0686223

PATIENT
  Sex: Male

DRUGS (2)
  1. SOVALDI [Suspect]
     Active Substance: SOFOSBUVIR
     Indication: Hepatitis C
     Dosage: UNK
     Route: 065
     Dates: start: 2014
  2. DAKLINZA [Suspect]
     Active Substance: DACLATASVIR
     Indication: Hepatitis C
     Dosage: UNK
     Route: 065

REACTIONS (4)
  - Hepatitis C [Unknown]
  - Gastric cancer [Unknown]
  - Hepatocellular carcinoma [Unknown]
  - Drug ineffective [Unknown]
